FAERS Safety Report 5425482-8 (Version None)
Quarter: 2007Q3

REPORT INFORMATION
  Report Type: 
  Country: None (occurrence: None)
  Receive Date: 20070824
  Receipt Date: 20070815
  Transmission Date: 20080115
  Serious: Yes (Hospitalization, Other)
  Sender: FDA-Public Use
  Company Number: US-PFIZER INC-2007044401

PATIENT
  Sex: Female
  Weight: 131.1 kg

DRUGS (1)
  1. CELEBREX [Suspect]
     Indication: ARTHRALGIA
     Dates: start: 19990101, end: 20030901

REACTIONS (5)
  - ABASIA [None]
  - APHONIA [None]
  - CARDIOVASCULAR DISORDER [None]
  - MUTISM [None]
  - VISUAL ACUITY REDUCED [None]
